FAERS Safety Report 9888599 (Version 1)
Quarter: 2014Q1

REPORT INFORMATION
  Report Type: Spontaneous
  Country: US (occurrence: US)
  Receive Date: 20140211
  Receipt Date: 20140211
  Transmission Date: 20141002
  Serious: Yes (Other)
  Sender: FDA-Public Use
  Company Number: US-ELI_LILLY_AND_COMPANY-US201402001266

PATIENT
  Sex: Male

DRUGS (4)
  1. GEMZAR [Suspect]
     Indication: PANCREATIC CARCINOMA
     Dosage: WEEKLY X 3WKS THEN OFF 1 WEEK
     Dates: start: 20131125
  2. TOPROL [Concomitant]
  3. EFFIENT [Concomitant]
  4. SIMVASTATIN [Concomitant]

REACTIONS (4)
  - Chest pain [Not Recovered/Not Resolved]
  - Coronary artery occlusion [Unknown]
  - Chest discomfort [Unknown]
  - Platelet count decreased [Unknown]
